FAERS Safety Report 9027747 (Version 1)
Quarter: 2013Q1

REPORT INFORMATION
  Report Type: Spontaneous
  Country: US (occurrence: US)
  Receive Date: 20130123
  Receipt Date: 20130123
  Transmission Date: 20140127
  Serious: Yes (Hospitalization)
  Sender: FDA-Public Use
  Company Number: US-ROXANE LABORATORIES, INC.-2013-RO-00096RO

PATIENT
  Age: 65 Year
  Sex: Female

DRUGS (3)
  1. DONEPEZIL HYDROCHLORIDE [Suspect]
     Indication: DEMENTIA ALZHEIMER^S TYPE
     Dosage: 5 MG
  2. QUETIAPINE FUMARATE [Suspect]
     Indication: MANIA
  3. CLOPIDOGREL [Concomitant]

REACTIONS (2)
  - Mania [Unknown]
  - Drug ineffective for unapproved indication [Unknown]
